FAERS Safety Report 18547515 (Version 1)
Quarter: 2020Q4

REPORT INFORMATION
  Report Type: Spontaneous
  Country: GR (occurrence: GR)
  Receive Date: 20201125
  Receipt Date: 20201125
  Transmission Date: 20210114
  Serious: Yes (Other)
  Sender: FDA-Public Use
  Company Number: GR-009507513-1912GRC012282

PATIENT
  Age: 62 Year
  Sex: Female

DRUGS (6)
  1. INEGY [Suspect]
     Active Substance: EZETIMIBE\SIMVASTATIN
     Dosage: UNK
     Route: 048
  2. COVERSYL (PERINDOPRIL ARGININE) [Concomitant]
     Active Substance: PERINDOPRIL ARGININE
     Indication: CARDIOVASCULAR DISORDER
  3. INEGY [Suspect]
     Active Substance: EZETIMIBE\SIMVASTATIN
     Dosage: 1 TABLET DAILY AT NIGHT (HS)
     Route: 048
     Dates: start: 2019
  4. COVERSYL (PERINDOPRIL ARGININE) [Concomitant]
     Active Substance: PERINDOPRIL ARGININE
     Indication: ARRHYTHMIA
     Dosage: UNK, DAILY IN THE MORNING (QD)
  5. CONCOR [Concomitant]
     Active Substance: BISOPROLOL FUMARATE
     Indication: ARRHYTHMIA
     Dosage: UNK , DAILY IN THE MORNING (QD)
  6. CONCOR [Concomitant]
     Active Substance: BISOPROLOL FUMARATE
     Indication: CARDIOVASCULAR DISORDER

REACTIONS (10)
  - Arrhythmia [Unknown]
  - Arthralgia [Recovered/Resolved]
  - Product dose omission issue [Unknown]
  - Pruritus [Recovering/Resolving]
  - Loss of consciousness [Unknown]
  - Confusional state [Recovered/Resolved]
  - Osteopenia [Unknown]
  - Abnormal dreams [Not Recovered/Not Resolved]
  - Amnesia [Recovered/Resolved]
  - Myalgia [Recovered/Resolved]

NARRATIVE: CASE EVENT DATE: 20191227
